FAERS Safety Report 17822364 (Version 3)
Quarter: 2020Q2

REPORT INFORMATION
  Report Type: Report from Study
  Country: None (occurrence: US)
  Receive Date: 20200526
  Receipt Date: 20200623
  Transmission Date: 20200714
  Serious: Yes (Hospitalization, Other)
  Sender: FDA-Public Use
  Company Number: US-ABBVIE-19K-163-3006803-00

PATIENT
  Age: 87 Year
  Sex: Female
  Weight: 74.91 kg

DRUGS (8)
  1. LIPITOR [Concomitant]
     Active Substance: ATORVASTATIN CALCIUM
     Indication: BLOOD CHOLESTEROL INCREASED
  2. POTASSIUM [Concomitant]
     Active Substance: POTASSIUM
     Indication: MINERAL SUPPLEMENTATION
  3. METHOTREXATE. [Concomitant]
     Active Substance: METHOTREXATE
     Indication: RHEUMATOID ARTHRITIS
  4. ELIQUIS [Suspect]
     Active Substance: APIXABAN
     Indication: BLOOD PRESSURE ABNORMAL
     Route: 065
  5. CALCIUM WITH D3 [Concomitant]
     Indication: VITAMIN SUPPLEMENTATION
  6. HUMIRA [Suspect]
     Active Substance: ADALIMUMAB
     Indication: RHEUMATOID ARTHRITIS
     Route: 058
     Dates: start: 20190822
  7. SYNTHROID [Concomitant]
     Active Substance: LEVOTHYROXINE SODIUM
     Indication: HYPOTHYROIDISM
  8. CALCIUM WITH D3 [Concomitant]
     Indication: MINERAL SUPPLEMENTATION

REACTIONS (14)
  - Peripheral swelling [Recovered/Resolved]
  - Gastrointestinal polyp haemorrhage [Unknown]
  - Hypersomnia [Recovered/Resolved]
  - Weight decreased [Not Recovered/Not Resolved]
  - Loss of personal independence in daily activities [Unknown]
  - Internal haemorrhage [Unknown]
  - Atrial fibrillation [Recovered/Resolved]
  - Hypothyroidism [Recovered/Resolved]
  - Mobility decreased [Unknown]
  - Pain [Unknown]
  - Fatigue [Recovered/Resolved with Sequelae]
  - Anaemia [Not Recovered/Not Resolved]
  - Cardiac ablation [Recovered/Resolved]
  - Dyspnoea [Recovered/Resolved]

NARRATIVE: CASE EVENT DATE: 201911
